FAERS Safety Report 9773430 (Version 2)
Quarter: 2014Q1

REPORT INFORMATION
  Report Type: Report from Study
  Country: BR (occurrence: BR)
  Receive Date: 20131219
  Receipt Date: 20140225
  Transmission Date: 20141002
  Serious: Yes (Other)
  Sender: FDA-Public Use
  Company Number: PHHY2013BR149083

PATIENT
  Sex: Female
  Weight: 56 kg

DRUGS (8)
  1. ACLASTA [Suspect]
     Indication: OSTEOPOROSIS
     Dosage: 5 MG
     Route: 042
     Dates: start: 2012
  2. OMEPRAZOLE [Concomitant]
     Dosage: UNK UKN, UNK
  3. THIOCTACID [Concomitant]
     Dosage: UNK UKN, UNK
  4. EBIX [Concomitant]
     Dosage: UNK UKN, UNK
  5. ARTROLIVE [Concomitant]
     Dosage: UNK UKN, UNK
  6. CALTRATE [Concomitant]
     Dosage: UNK UKN, UNK
  7. ASPIRINA [Concomitant]
     Dosage: UNK UKN, UNK
  8. VASOGARD [Concomitant]
     Dosage: UNK UKN, UNK

REACTIONS (2)
  - Wound [Recovering/Resolving]
  - Pain [Unknown]
